FAERS Safety Report 8509954-5 (Version None)
Quarter: 2012Q3

REPORT INFORMATION
  Report Type: 
  Country: None (occurrence: None)
  Receive Date: 20120713
  Receipt Date: 20120705
  Transmission Date: 20120928
  Serious: Yes (Hospitalization)
  Sender: FDA-Public Use
  Company Number: ES-ELI_LILLY_AND_COMPANY-ES201202001721

PATIENT
  Sex: Female
  Weight: 82 kg

DRUGS (3)
  1. LEVOTHYROXINE SODIUM [Concomitant]
     Dosage: 100 MG, 2/W
     Route: 048
  2. FORTEO [Suspect]
     Indication: OSTEOPOROSIS
     Dosage: 20 UG, QD
     Route: 058
     Dates: start: 20111209, end: 20120125
  3. LEVOTHYROXINE SODIUM [Concomitant]
     Indication: HYPOTHYROIDISM
     Dosage: 75 MG, 5/W
     Route: 048

REACTIONS (4)
  - TIBIA FRACTURE [None]
  - FIBULA FRACTURE [None]
  - ARTHROPATHY [None]
  - PAIN IN EXTREMITY [None]
